FAERS Safety Report 25726016 (Version 2)
Quarter: 2025Q4

REPORT INFORMATION
  Report Type: Spontaneous
  Country: US (occurrence: US)
  Receive Date: 20250826
  Receipt Date: 20251218
  Transmission Date: 20260118
  Serious: Yes (Other)
  Sender: TEVA
  Company Number: US-TEVA-VS-3360891

PATIENT
  Age: 73 Year
  Sex: Female

DRUGS (4)
  1. VENLAFAXINE HYDROCHLORIDE [Suspect]
     Active Substance: VENLAFAXINE HYDROCHLORIDE
     Indication: Anxiety
     Dosage: EXTENDED RELEASE CAPSULE
     Route: 048
     Dates: start: 2023
  2. MELATONIN [Concomitant]
     Active Substance: MELATONIN
     Indication: Product used for unknown indication
     Dosage: 3 MG AT NIGHT
     Route: 065
  3. CRANBERRY [Concomitant]
     Active Substance: CRANBERRY
     Indication: Cystitis
     Dosage: 4200 MG TAKEN OFTEN, BUT NOT DAILY TO PREVENT BLADDER INFECTIONS.
     Route: 065
  4. KLONOPIN [Concomitant]
     Active Substance: CLONAZEPAM
     Indication: Product used for unknown indication
     Route: 065

REACTIONS (10)
  - Deafness [Unknown]
  - Tremor [Unknown]
  - Dizziness [Unknown]
  - Tinnitus [Unknown]
  - Constipation [Unknown]
  - Anxiety [Unknown]
  - Product odour abnormal [Unknown]
  - Muscle twitching [Unknown]
  - Abnormal dreams [Unknown]
  - Nightmare [Unknown]

NARRATIVE: CASE EVENT DATE: 20250101
